FAERS Safety Report 22212729 (Version 1)
Quarter: 2023Q2

REPORT INFORMATION
  Report Type: Spontaneous
  Country: FR (occurrence: TR)
  Receive Date: 20230414
  Receipt Date: 20230414
  Transmission Date: 20230722
  Serious: Yes (Hospitalization)
  Sender: FDA-Public Use
  Company Number: None

PATIENT
  Age: 41 Year
  Sex: Female

DRUGS (2)
  1. DYSPORT [Suspect]
     Active Substance: ABOBOTULINUMTOXINA
     Indication: Weight decreased
     Dosage: 1500 IU
     Route: 065
     Dates: start: 20230222, end: 20230222
  2. DYSPORT [Suspect]
     Active Substance: ABOBOTULINUMTOXINA
     Indication: Off label use

REACTIONS (8)
  - Dysphagia [Recovering/Resolving]
  - Dysphonia [Recovering/Resolving]
  - Monoparesis [Recovering/Resolving]
  - Gait disturbance [Recovering/Resolving]
  - Botulism [Recovering/Resolving]
  - Impaired gastric emptying [Recovering/Resolving]
  - Paresis [Recovering/Resolving]
  - Off label use [Unknown]

NARRATIVE: CASE EVENT DATE: 20230303
